FAERS Safety Report 26052763 (Version 1)
Quarter: 2025Q4

REPORT INFORMATION
  Report Type: Spontaneous
  Country: US (occurrence: None)
  Receive Date: 20251114
  Receipt Date: 20251114
  Transmission Date: 20260118
  Serious: Yes (Other)
  Sender: FDA-CTU
  Company Number: None

PATIENT
  Age: 55 Year
  Sex: Female
  Weight: 58.95 kg

DRUGS (2)
  1. CARVYKTI [Suspect]
     Active Substance: CILTACABTAGENE AUTOLEUCEL
     Indication: Plasma cell myeloma
     Dosage: ONCE INTRAVENOUS
     Route: 042
     Dates: start: 20251024, end: 20251024
  2. CCARVYKTI (ciltacabtagene autoleucel). [Concomitant]
     Dates: start: 20251024, end: 20251024

REACTIONS (1)
  - Bell^s palsy [None]

NARRATIVE: CASE EVENT DATE: 20251113
